FAERS Safety Report 4666292-9 (Version None)
Quarter: 2005Q2

REPORT INFORMATION
  Report Type: 
  Country: None (occurrence: None)
  Receive Date: 20050518
  Receipt Date: 20050518
  Transmission Date: 20051028
  Serious: Yes (Other)
  Sender: FDA-Public Use
  Company Number: None

PATIENT
  Age: 72 Year
  Sex: Female

DRUGS (2)
  1. ATIVAN [Suspect]
     Indication: ANXIETY
     Dosage: ONE DAILY
     Dates: start: 19840101
  2. ATIVAN [Suspect]
     Indication: INSOMNIA
     Dosage: ONE DAILY
     Dates: start: 19840101

REACTIONS (1)
  - DEMENTIA [None]
